FAERS Safety Report 20527290 (Version 1)
Quarter: 2022Q1

REPORT INFORMATION
  Report Type: Spontaneous
  Country: US (occurrence: None)
  Receive Date: 20220228
  Receipt Date: 20220228
  Transmission Date: 20220423
  Serious: No
  Sender: FDA-Public Use
  Company Number: None

PATIENT
  Age: 53 Year
  Sex: Female
  Weight: 60.78 kg

DRUGS (1)
  1. EMTRICITABINE\TENOFOVIR [Suspect]
     Active Substance: EMTRICITABINE\TENOFOVIR
     Indication: HIV infection
     Dosage: 200-300MG DAILY PO?
     Route: 048
     Dates: start: 20210707

REACTIONS (2)
  - Weight decreased [None]
  - Product substitution issue [None]

NARRATIVE: CASE EVENT DATE: 20220228
